FAERS Safety Report 15632122 (Version 1)
Quarter: 2018Q4

REPORT INFORMATION
  Report Type: Spontaneous
  Country: FR (occurrence: FR)
  Receive Date: 20181119
  Receipt Date: 20181119
  Transmission Date: 20190205
  Serious: Yes (Other)
  Sender: FDA-Public Use
  Company Number: US-BRAINTREE LABORATORIES-160857-1

PATIENT
  Age: 73 Year
  Sex: Female

DRUGS (1)
  1. EZICLEN [Suspect]
     Active Substance: MAGNESIUM SULFATE\POTASSIUM SULFATE\SODIUM SULFATE
     Indication: COLONOSCOPY
     Dosage: {2X6 OZ. BOTTLE
     Route: 048
     Dates: start: 20161128, end: 20161128

REACTIONS (7)
  - Abdominal pain upper [None]
  - Malaise [None]
  - Nausea [None]
  - Product taste abnormal [None]
  - Headache [None]
  - Oesophageal perforation [None]
  - Vomiting [None]

NARRATIVE: CASE EVENT DATE: 20161128
